FAERS Safety Report 8251518-5 (Version None)
Quarter: 2012Q1

REPORT INFORMATION
  Report Type: 
  Country: None (occurrence: None)
  Receive Date: 20120321
  Receipt Date: 20110909
  Transmission Date: 20120608
  Serious: Yes (Other)
  Sender: FDA-Public Use
  Company Number: 1034007

PATIENT
  Sex: Female

DRUGS (1)
  1. HEPARIN SODIUM INJECTION [Suspect]
     Indication: PRODUCT USED FOR UNKNOWN INDICATION
     Dosage: ONE BAG, INTRAVENOUS DRIP
     Route: 041
     Dates: start: 20110819, end: 20110819

REACTIONS (2)
  - DRUG ADMINISTRATION ERROR [None]
  - ACTIVATED PARTIAL THROMBOPLASTIN TIME PROLONGED [None]
